FAERS Safety Report 4354120-0 (Version None)
Quarter: 2004Q2

REPORT INFORMATION
  Report Type: 
  Country: None (occurrence: None)
  Receive Date: 20040430
  Receipt Date: 20040419
  Transmission Date: 20050107
  Serious: Yes (Hospitalization)
  Sender: FDA-Public Use
  Company Number: 2004-DE02204DE

PATIENT
  Age: 55 Year
  Sex: Female

DRUGS (4)
  1. SIFROL (PRAMIPEXOLE DIHYDROCHLORIDE) (TA) (PRAMIPEXOLE) [Suspect]
     Dosage: PO
     Route: 048
  2. TREVILOR 37,5 (VENLAFAXINE HYDROCHLORIDE) [Suspect]
     Dosage: 2250 MG (1X60 TABLETS) PO/ONCE
     Route: 048
  3. ERGENYL CHRONO 500 [Suspect]
     Dosage: 1X8-10 TABLETS (1X8-10 TABLETS) PO/ONCE
     Route: 048
  4. WINE [Suspect]
     Dosage: 1 LITRE WINE (1 LITRE WINE) PO/ONCE
     Route: 048

REACTIONS (6)
  - ALCOHOL USE [None]
  - BOWEL SOUNDS ABNORMAL [None]
  - INTENTIONAL OVERDOSE [None]
  - SOMNOLENCE [None]
  - SUICIDE ATTEMPT [None]
  - VOMITING [None]
